FAERS Safety Report 16280563 (Version 2)
Quarter: 2019Q2

REPORT INFORMATION
  Report Type: Spontaneous
  Country: GR (occurrence: GR)
  Receive Date: 20190507
  Receipt Date: 20190513
  Transmission Date: 20190711
  Serious: Yes (Death)
  Sender: FDA-Public Use
  Company Number: GR-SA-2019SA123861

PATIENT
  Age: 73 Year
  Sex: Male

DRUGS (6)
  1. NIVOLUMAB [Concomitant]
     Active Substance: NIVOLUMAB
     Dosage: UNK
  2. DOCETAXEL. [Suspect]
     Active Substance: DOCETAXEL
     Indication: LUNG ADENOCARCINOMA
     Dosage: UNK UNK, QCY
  3. BEVACIZUMAB. [Suspect]
     Active Substance: BEVACIZUMAB
     Indication: LUNG ADENOCARCINOMA
     Dosage: UNK UNK, QCY
  4. NINTEDANIB [Suspect]
     Active Substance: NINTEDANIB
     Indication: LUNG ADENOCARCINOMA
     Dosage: UNK UNK, QCY
  5. PEMETREXED. [Suspect]
     Active Substance: PEMETREXED
     Indication: LUNG ADENOCARCINOMA
     Dosage: UNK UNK, QCY
  6. CISPLATIN. [Suspect]
     Active Substance: CISPLATIN
     Indication: LUNG ADENOCARCINOMA
     Dosage: UNK UNK, QCY

REACTIONS (6)
  - Breast pain [Unknown]
  - General physical health deterioration [Fatal]
  - Gynaecomastia [Unknown]
  - Disease progression [Fatal]
  - Drug tolerance decreased [Fatal]
  - Human chorionic gonadotropin increased [Unknown]
